FAERS Safety Report 4596013-X (Version None)
Quarter: 2005Q1

REPORT INFORMATION
  Report Type: 
  Country: None (occurrence: None)
  Receive Date: 20050224
  Receipt Date: 20050224
  Transmission Date: 20050727
  Serious: Yes (Disabling, Other)
  Sender: FDA-Public Use
  Company Number: None

PATIENT
  Age: 44 Year
  Sex: Female

DRUGS (4)
  1. EFFEXOR XR [Suspect]
     Indication: DYSTHYMIC DISORDER
     Dosage: THREE Q AM
     Dates: start: 20020523
  2. EFFEXOR XR [Suspect]
     Indication: MAJOR DEPRESSION
     Dosage: THREE Q AM
     Dates: start: 20020523
  3. LIPITOR [Concomitant]
  4. PLENDIL [Concomitant]

REACTIONS (1)
  - PARAESTHESIA [None]
